FAERS Safety Report 5314361-2 (Version None)
Quarter: 2007Q2

REPORT INFORMATION
  Report Type: 
  Country: None (occurrence: None)
  Receive Date: 20070502
  Receipt Date: 20070427
  Transmission Date: 20071010
  Serious: Yes (Life-Threatening, Hospitalization)
  Sender: FDA-Public Use
  Company Number: PHHO2007AT07340

PATIENT
  Sex: Female

DRUGS (20)
  1. CLOZAPINE [Suspect]
     Indication: SCHIZOPHRENIA
     Dosage: 50 MG
  2. CLOZAPINE [Suspect]
     Dosage: 100 MG
     Dates: start: 20061230, end: 20061231
  3. CLOZAPINE [Suspect]
     Dosage: 25 MG
     Dates: start: 20070101, end: 20070101
  4. EUTHYROX [Concomitant]
  5. KEMADRIN [Concomitant]
  6. TRITTICO [Concomitant]
  7. TEMESTA [Concomitant]
  8. NEXIUM [Concomitant]
  9. DOMINAL FORTE [Concomitant]
  10. CIPRALEX [Concomitant]
  11. DAPOTUM [Concomitant]
  12. RISPERDAL [Concomitant]
  13. HALDOL [Concomitant]
  14. SEROQUEL [Concomitant]
  15. LOVENOX [Concomitant]
  16. FORTIMEL [Suspect]
  17. GLUCOSE [Suspect]
  18. MOTRIM [Concomitant]
  19. SPASMO-URGENIN [Concomitant]
  20. AKINETON [Concomitant]

REACTIONS (6)
  - BLOOD GLUCOSE INCREASED [None]
  - C-REACTIVE PROTEIN INCREASED [None]
  - CONDITION AGGRAVATED [None]
  - GLUCOSE TOLERANCE IMPAIRED [None]
  - PLATELET COUNT INCREASED [None]
  - WHITE BLOOD CELL COUNT INCREASED [None]
